FAERS Safety Report 5450836-3 (Version None)
Quarter: 2007Q3

REPORT INFORMATION
  Report Type: 
  Country: None (occurrence: None)
  Receive Date: 20070913
  Receipt Date: 20070907
  Transmission Date: 20080115
  Serious: Yes (Other)
  Sender: FDA-Public Use
  Company Number: PHEH2007US09875

PATIENT
  Age: 62 Year
  Sex: Female

DRUGS (4)
  1. GLEEVEC [Suspect]
     Indication: CHRONIC MYELOID LEUKAEMIA
     Dosage: 400 MG, QD
     Route: 048
     Dates: start: 20070212, end: 20070706
  2. ATENOLOL [Concomitant]
     Indication: HYPERTENSION
     Dosage: 50 MG, QD
     Route: 048
  3. DYAZIDE [Concomitant]
     Indication: HYPERTENSION
     Dosage: 1 DF, QD
     Route: 048
  4. DARVOCET [Concomitant]
     Indication: PAIN
     Dosage: 1 DF, Q4H PRN
     Route: 048

REACTIONS (4)
  - BLINDNESS [None]
  - BLOOD PRESSURE FLUCTUATION [None]
  - HYPOPERFUSION [None]
  - OPTIC ISCHAEMIC NEUROPATHY [None]
